FAERS Safety Report 9112788 (Version 1)
Quarter: 2013Q1

REPORT INFORMATION
  Report Type: Spontaneous
  Country: US (occurrence: US)
  Receive Date: 20130211
  Receipt Date: 20130211
  Transmission Date: 20140127
  Serious: Yes (Other)
  Sender: FDA-Public Use
  Company Number: CHPA2013US002270

PATIENT
  Age: 75 Year
  Sex: Female

DRUGS (2)
  1. MAALOX ANTACID/ANTIGAS MAX QDTABS ASST [Suspect]
     Indication: MUSCULOSKELETAL PAIN
     Dosage: 2 DF, PRN
     Route: 048
     Dates: start: 2006
  2. FOSAMAX [Concomitant]
     Indication: OSTEOPENIA
     Dosage: UNK, UNK
     Dates: start: 2008

REACTIONS (5)
  - Oesophageal disorder [Not Recovered/Not Resolved]
  - Bone loss [Not Recovered/Not Resolved]
  - Tooth loss [Recovered/Resolved]
  - Gingival disorder [Unknown]
  - Off label use [Unknown]
